FAERS Safety Report 8308892-0 (Version None)
Quarter: 2012Q2

REPORT INFORMATION
  Report Type: 
  Country: None (occurrence: None)
  Receive Date: 20120424
  Receipt Date: 20120418
  Transmission Date: 20120825
  Serious: Yes (Other)
  Sender: FDA-Public Use
  Company Number: IT-ABBOTT-12P-083-0927397-00

PATIENT
  Sex: Male

DRUGS (8)
  1. NEORECORMON [Suspect]
     Indication: RENAL FAILURE CHRONIC
     Dosage: WEEKLY
     Route: 042
     Dates: start: 20100901
  2. PREFOLIC [Concomitant]
     Indication: PRODUCT USED FOR UNKNOWN INDICATION
     Route: 030
  3. ENOXAPARIN SODIUM [Concomitant]
     Indication: PRODUCT USED FOR UNKNOWN INDICATION
     Route: 058
  4. ZEMPLAR [Suspect]
     Indication: RENAL FAILURE CHRONIC
     Dosage: WEEKLY
     Route: 042
     Dates: start: 20101101
  5. ATORVASTATIN CALCIUM [Concomitant]
     Indication: PRODUCT USED FOR UNKNOWN INDICATION
     Route: 048
  6. OMEPRAZOLE [Concomitant]
     Indication: PRODUCT USED FOR UNKNOWN INDICATION
  7. ASPIRIN [Concomitant]
     Indication: PRODUCT USED FOR UNKNOWN INDICATION
  8. SODIUM FERRIC GLUCONATE COMPLEX [Suspect]
     Indication: RENAL FAILURE CHRONIC
     Dosage: WEEKLY
     Route: 042
     Dates: start: 20101101

REACTIONS (3)
  - TREMOR [None]
  - DYSPNOEA [None]
  - RALES [None]
